FAERS Safety Report 23257003 (Version 1)
Quarter: 2023Q4

REPORT INFORMATION
  Report Type: Spontaneous
  Country: EG (occurrence: EG)
  Receive Date: 20231204
  Receipt Date: 20231204
  Transmission Date: 20240109
  Serious: Yes (Hospitalization, Other)
  Sender: FDA-Public Use
  Company Number: EG-STRIDES ARCOLAB LIMITED-2023SP017977

PATIENT

DRUGS (3)
  1. PREDNISOLONE [Suspect]
     Active Substance: PREDNISOLONE
     Indication: Uveitis
     Dosage: 1 MG/KG/DAY
     Route: 065
  2. PREDNISOLONE ACETATE [Suspect]
     Active Substance: PREDNISOLONE ACETATE
     Indication: Uveitis
     Dosage: UNK UNK, EVERY 2 HRS FOR 48 HOURS, EYE DROPS
     Route: 061
  3. PREDNISOLONE ACETATE [Suspect]
     Active Substance: PREDNISOLONE ACETATE
     Dosage: UNK, 5 TIMES DAILY
     Route: 061

REACTIONS (2)
  - Ocular hypertension [Recovered/Resolved]
  - Treatment failure [Unknown]
